FAERS Safety Report 4766742-3 (Version None)
Quarter: 2005Q3

REPORT INFORMATION
  Report Type: 
  Country: None (occurrence: None)
  Receive Date: 20050912
  Receipt Date: 20050831
  Transmission Date: 20060218
  Serious: Yes (Other)
  Sender: FDA-Public Use
  Company Number: 2005US001155

PATIENT
  Age: 51 Year
  Sex: Female

DRUGS (2)
  1. TACROLIMUS CAP (TACROLIMUS CAPSULES)CAPSULE [Suspect]
     Dosage: 6.00 % TID, ORAL
     Route: 048
     Dates: start: 20050803
  2. CELLCEPT [Concomitant]

REACTIONS (3)
  - BLOOD CREATININE INCREASED [None]
  - MULTIPLE MYELOMA [None]
  - NEPHROPATHY [None]
